FAERS Safety Report 7395462-4 (Version None)
Quarter: 2011Q2

REPORT INFORMATION
  Report Type: 
  Country: None (occurrence: None)
  Receive Date: 20110405
  Receipt Date: 20110331
  Transmission Date: 20111010
  Serious: Yes (Other)
  Sender: FDA-Public Use
  Company Number: BR-ABBOTT-11P-020-0715980-00

PATIENT
  Sex: Male

DRUGS (2)
  1. HUMIRA [Suspect]
     Indication: CROHN'S DISEASE
     Dosage: INDUCTION DOSE
     Dates: start: 20100301
  2. HUMIRA [Suspect]
     Dosage: INDUCTION DOSE

REACTIONS (2)
  - HAEMORRHAGE [None]
  - FISTULA [None]
